APPROVED DRUG PRODUCT: WARFARIN SODIUM
Active Ingredient: WARFARIN SODIUM
Strength: 6MG
Dosage Form/Route: TABLET;ORAL
Application: A040145 | Product #009
Applicant: BARR LABORATORIES INC
Approved: Nov 5, 1998 | RLD: No | RS: No | Type: DISCN